FAERS Safety Report 6028054-X (Version None)
Quarter: 2008Q4

REPORT INFORMATION
  Report Type: 
  Country: None (occurrence: None)
  Receive Date: 20081231
  Receipt Date: 20081219
  Transmission Date: 20090506
  Serious: Yes (Life-Threatening, Hospitalization)
  Sender: FDA-Public Use
  Company Number: 100#08#2008-06362

PATIENT
  Age: 44 Year
  Sex: Female

DRUGS (4)
  1. NIFEDIPINE [Suspect]
     Indication: UTERINE HYPERTONUS
     Dosage: SEE IMAGE.
  2. SALBUTAMOL (SALBUTAMOL) [Concomitant]
  3. FUROSEMIDE [Suspect]
     Indication: PULMONARY OEDEMA
     Dosage: 40 MG
  4. ATOSIBAN (ATOSIBAN) [Suspect]
     Indication: UTERINE HYPERTONUS
     Route: 042

REACTIONS (8)
  - CARDIAC VALVE DISEASE [None]
  - DRUG EXPOSURE DURING PREGNANCY [None]
  - DRUG INEFFECTIVE [None]
  - PERIPARTUM CARDIOMYOPATHY [None]
  - PREMATURE LABOUR [None]
  - PULMONARY OEDEMA [None]
  - RESPIRATORY FAILURE [None]
  - SINUS TACHYCARDIA [None]
